FAERS Safety Report 6772240-8 (Version None)
Quarter: 2010Q2

REPORT INFORMATION
  Report Type: 
  Country: None (occurrence: None)
  Receive Date: 20100616
  Receipt Date: 20090916
  Transmission Date: 20101027
  Serious: No
  Sender: FDA-Public Use
  Company Number: US-ASTRAZENECA-2009SE13543

PATIENT
  Age: 23780 Day
  Sex: Female
  Weight: 63.5 kg

DRUGS (1)
  1. PULMICORT FLEXHALER [Suspect]
     Indication: ASTHMA
     Dosage: 180 MCG 2 PUFFS
     Route: 055
     Dates: start: 20090915

REACTIONS (2)
  - CHEST DISCOMFORT [None]
  - DRUG INEFFECTIVE [None]
